FAERS Safety Report 4725218-X (Version None)
Quarter: 2005Q3

REPORT INFORMATION
  Report Type: 
  Country: None (occurrence: None)
  Receive Date: 20050725
  Receipt Date: 20050712
  Transmission Date: 20060218
  Serious: Yes (Hospitalization, Other)
  Sender: FDA-Public Use
  Company Number: 2005099668

PATIENT
  Sex: Female
  Weight: 68.0396 kg

DRUGS (3)
  1. NEURONTIN [Suspect]
     Indication: BACK PAIN
     Dosage: ORAL
     Route: 048
  2. VICODIN [Suspect]
     Indication: BACK PAIN
     Dosage: 1600 MG (400 MG, 4 IN 1 D)
     Dates: start: 20050101
  3. AMITRIPTYLINE HCL [Concomitant]

REACTIONS (6)
  - BACK PAIN [None]
  - BLOOD DISORDER [None]
  - BLOOD GLUCOSE INCREASED [None]
  - CARBOHYDRATE METABOLISM DISORDER [None]
  - CARDIAC DISORDER [None]
  - LUNG DISORDER [None]
